FAERS Safety Report 25094502 (Version 1)
Quarter: 2025Q1

REPORT INFORMATION
  Report Type: Spontaneous
  Country: US (occurrence: US)
  Receive Date: 20250319
  Receipt Date: 20250319
  Transmission Date: 20250409
  Serious: Yes (Other)
  Sender: MYLAN
  Company Number: US-MYLANLABS-2025M1023082

PATIENT
  Age: 78 Year
  Sex: Male

DRUGS (6)
  1. GEMCITABINE [Suspect]
     Active Substance: GEMCITABINE
     Indication: Adenocarcinoma pancreas
  2. PACLITAXEL [Suspect]
     Active Substance: PACLITAXEL
     Indication: Adenocarcinoma pancreas
  3. PEMBROLIZUMAB [Suspect]
     Active Substance: PEMBROLIZUMAB
     Indication: Adenocarcinoma pancreas
  4. NK-92 (ANTIPD-L1-CAR, CD16.158V, ERIL-2) [Suspect]
     Active Substance: NK-92 (ANTIPD-L1-CAR, CD16.158V, ERIL-2)
     Indication: Adenocarcinoma pancreas
  5. INBAKICEPT [Suspect]
     Active Substance: INBAKICEPT
     Indication: Adenocarcinoma pancreas
  6. ALDOXORUBICIN [Suspect]
     Active Substance: ALDOXORUBICIN
     Indication: Adenocarcinoma pancreas

REACTIONS (2)
  - Drug ineffective [Unknown]
  - Disease progression [Unknown]
